FAERS Safety Report 6154568-8 (Version None)
Quarter: 2009Q2

REPORT INFORMATION
  Report Type: 
  Country: None (occurrence: None)
  Receive Date: 20090414
  Receipt Date: 20090408
  Transmission Date: 20091009
  Serious: Yes (Hospitalization)
  Sender: FDA-Public Use
  Company Number: BR-BRISTOL-MYERS SQUIBB COMPANY-14579007

PATIENT
  Age: 63 Year
  Sex: Female

DRUGS (5)
  1. CEFEPIME [Suspect]
  2. AMPHOTERICIN B [Suspect]
  3. CLARITHROMYCIN [Suspect]
  4. IMIPENEM [Suspect]
  5. VANCOMYCIN HCL [Suspect]

REACTIONS (3)
  - PNEUMONIA NECROTISING [None]
  - RESPIRATORY FAILURE [None]
  - SEPTIC SHOCK [None]
